FAERS Safety Report 7507444-X (Version None)
Quarter: 2011Q2

REPORT INFORMATION
  Report Type: 
  Country: None (occurrence: None)
  Receive Date: 20110526
  Receipt Date: 20110520
  Transmission Date: 20111010
  Serious: Yes (Other)
  Sender: FDA-Public Use
  Company Number: FR-BAXTER-2011BH016928

PATIENT
  Age: 44 Year
  Sex: Female
  Weight: 47 kg

DRUGS (5)
  1. EMEND [Suspect]
     Route: 048
     Dates: start: 20110407, end: 20110407
  2. DOCETAXEL [Suspect]
     Indication: BREAST CANCER
     Route: 042
     Dates: start: 20110407, end: 20110407
  3. CYCLOPHOSPHAMIDE [Suspect]
     Indication: BREAST CANCER
     Route: 042
     Dates: start: 20110407, end: 20110407
  4. EMEND [Suspect]
     Indication: PRODUCT USED FOR UNKNOWN INDICATION
     Route: 048
     Dates: start: 20110408, end: 20110409
  5. KYTRIL [Concomitant]
     Indication: PRODUCT USED FOR UNKNOWN INDICATION
     Route: 048
     Dates: start: 20110407, end: 20110407

REACTIONS (4)
  - ASTHENIA [None]
  - ORAL MUCOSA EROSION [None]
  - ARTHRALGIA [None]
  - MYALGIA [None]
